FAERS Safety Report 6737718-1 (Version None)
Quarter: 2010Q2

REPORT INFORMATION
  Report Type: 
  Country: None (occurrence: None)
  Receive Date: 20100524
  Receipt Date: 20100513
  Transmission Date: 20101027
  Serious: Yes (Hospitalization)
  Sender: FDA-Public Use
  Company Number: PHHY2008BR22699

PATIENT
  Sex: Male
  Weight: 81 kg

DRUGS (2)
  1. FORASEQ [Suspect]
     Indication: EMPHYSEMA
     Dosage: EVERY 12 HOURS.
  2. FORASEQ [Suspect]
     Indication: CHRONIC OBSTRUCTIVE PULMONARY DISEASE
     Dosage: INHALATION THRICE A DAY (IN THE MORNING, IN THE AFTERNOON AND AT NIGHT)

REACTIONS (8)
  - BLOOD GLUCOSE INCREASED [None]
  - DEVICE MALFUNCTION [None]
  - EMPHYSEMA [None]
  - IRRITABILITY [None]
  - MALAISE [None]
  - PNEUMONIA [None]
  - STRESS [None]
  - TREATMENT NONCOMPLIANCE [None]
